FAERS Safety Report 8287988-6 (Version None)
Quarter: 2012Q2

REPORT INFORMATION
  Report Type: 
  Country: None (occurrence: None)
  Receive Date: 20120416
  Receipt Date: 20120405
  Transmission Date: 20120825
  Serious: Yes (Hospitalization)
  Sender: FDA-Public Use
  Company Number: MY-ASTRAZENECA-2012SE22882

PATIENT

DRUGS (1)
  1. BRILINTA [Suspect]
     Dosage: 180 MG LOADING DOSE
     Route: 048

REACTIONS (1)
  - MUSCLE HAEMORRHAGE [None]
